FAERS Safety Report 13850439 (Version 1)
Quarter: 2017Q3

REPORT INFORMATION
  Report Type: Spontaneous
  Country: GB (occurrence: GB)
  Receive Date: 20170809
  Receipt Date: 20170809
  Transmission Date: 20171127
  Serious: Yes (Other)
  Sender: FDA-Public Use
  Company Number: GB-TEVA-793054ACC

PATIENT
  Age: 42 Year
  Sex: Female

DRUGS (3)
  1. SANDOZ LTD CLARITHROMYCIN [Suspect]
     Active Substance: CLARITHROMYCIN
     Indication: LUNG INFECTION
     Dosage: UNK
     Route: 065
     Dates: start: 20170601, end: 20170606
  2. CLARITHROMYCIN. [Suspect]
     Active Substance: CLARITHROMYCIN
     Indication: LUNG INFECTION
     Dosage: UNK
     Route: 065
     Dates: start: 20170227, end: 20170308
  3. SANDOZ LTD CLARITHROMYCIN [Suspect]
     Active Substance: CLARITHROMYCIN
     Dosage: UNK
     Route: 065
     Dates: start: 20170130, end: 20170207

REACTIONS (5)
  - Abdominal pain upper [Recovered/Resolved]
  - Lung infection [Recovered/Resolved]
  - Gingivitis [Recovered/Resolved]
  - Mobility decreased [Recovered/Resolved]
  - Chest pain [Recovered/Resolved]

NARRATIVE: CASE EVENT DATE: 20170227
